FAERS Safety Report 25245000 (Version 1)
Quarter: 2025Q2

REPORT INFORMATION
  Report Type: Spontaneous
  Country: US (occurrence: None)
  Receive Date: 20250425
  Receipt Date: 20250425
  Transmission Date: 20250716
  Serious: No
  Sender: FDA-CTU
  Company Number: None

PATIENT

DRUGS (2)
  1. SUBLOCADE [Suspect]
     Active Substance: BUPRENORPHINE
     Indication: Drug use disorder
  2. SUBLOCADE [Suspect]
     Active Substance: BUPRENORPHINE
     Indication: Dependence

REACTIONS (5)
  - Sensory disturbance [None]
  - Pain [None]
  - Fatigue [None]
  - Influenza like illness [None]
  - Migraine [None]
